FAERS Safety Report 6829596-7 (Version None)
Quarter: 2010Q3

REPORT INFORMATION
  Report Type: 
  Country: None (occurrence: None)
  Receive Date: 20100709
  Receipt Date: 20070413
  Transmission Date: 20110219
  Serious: No
  Sender: FDA-Public Use
  Company Number: US-PFIZER INC-2007013291

PATIENT
  Sex: Male
  Weight: 83.91 kg

DRUGS (14)
  1. CHANTIX [Suspect]
     Indication: SMOKING CESSATION THERAPY
     Route: 048
     Dates: start: 20070101, end: 20070201
  2. CHANTIX [Suspect]
     Indication: DYSPEPSIA
  3. WARFARIN SODIUM [Concomitant]
  4. SAW PALMETTO [Concomitant]
  5. VALSARTAN [Concomitant]
  6. SIMVASTATIN [Concomitant]
  7. FOLIC ACID [Concomitant]
  8. OMEPRAZOLE [Concomitant]
  9. GUANFACINE HYDROCHLORIDE [Concomitant]
  10. FELODIPINE [Concomitant]
  11. ATENOLOL [Concomitant]
  12. GARLIC [Concomitant]
  13. CHROMIUM PICOLINATE [Concomitant]
  14. FISH OIL [Concomitant]

REACTIONS (4)
  - ABDOMINAL DISCOMFORT [None]
  - FEELING ABNORMAL [None]
  - INSOMNIA [None]
  - MALAISE [None]
